FAERS Safety Report 22021702 (Version 1)
Quarter: 2023Q1

REPORT INFORMATION
  Report Type: Spontaneous
  Country: US (occurrence: None)
  Receive Date: 20230218
  Receipt Date: 20230218
  Transmission Date: 20230418
  Serious: Yes (Other)
  Sender: FDA-Public Use
  Company Number: None

PATIENT
  Age: 79 Year
  Sex: Female

DRUGS (1)
  1. CLOPIDOGREL [Suspect]
     Active Substance: CLOPIDOGREL BISULFATE
     Indication: Thrombosis prophylaxis
     Dosage: 75 MG DAILY ORAL?
     Route: 048
     Dates: start: 20230210, end: 20230218

REACTIONS (3)
  - Product substitution issue [None]
  - Gingival bleeding [None]
  - Drooling [None]

NARRATIVE: CASE EVENT DATE: 20230216
